FAERS Safety Report 17555171 (Version 1)
Quarter: 2020Q1

REPORT INFORMATION
  Report Type: Spontaneous
  Country: DE (occurrence: DE)
  Receive Date: 20200318
  Receipt Date: 20200318
  Transmission Date: 20200409
  Serious: Yes (Congenital Anomaly)
  Sender: FDA-Public Use
  Company Number: NVSC2020DE075618

PATIENT
  Sex: Female

DRUGS (5)
  1. ACETAMINOPHEN (PARACETAMOL) [Suspect]
     Active Substance: ACETAMINOPHEN
     Indication: FOETAL EXPOSURE DURING PREGNANCY
     Dosage: UNK(MATERNAL DOSE: 500 MG QD DURING THE SECOND TRIMESTER, RECEIVED BETWEEN GESTATIONAL WEEKS 18 AND
     Route: 064
  2. SALBUTAMOL [Suspect]
     Active Substance: ALBUTEROL
     Indication: FOETAL EXPOSURE DURING PREGNANCY
     Dosage: UNK(MATERNAL: DURING THE SECOND TRIMESTER)
     Route: 064
  3. BUDESONIDE. [Suspect]
     Active Substance: BUDESONIDE
     Indication: FOETAL EXPOSURE DURING PREGNANCY
     Dosage: UNK(MATERNAL: DURING THE SECOND TRIMESTER)
     Route: 064
  4. ACICLOVIR [Suspect]
     Active Substance: ACYCLOVIR
     Indication: FOETAL EXPOSURE DURING PREGNANCY
     Dosage: UNK(MATERNAL: DURING THE SECOND TRIMESTER)
     Route: 064
  5. AMOXICILLIN. [Suspect]
     Active Substance: AMOXICILLIN
     Indication: FOETAL EXPOSURE DURING PREGNANCY
     Dosage: UNK(MATERNAL: DURING THE SECOND TRIMESTER)
     Route: 064

REACTIONS (4)
  - Atrial septal defect [Unknown]
  - Patent ductus arteriosus [Unknown]
  - Congenital tricuspid valve incompetence [Unknown]
  - Foetal exposure during pregnancy [Unknown]
